FAERS Safety Report 6458775-6 (Version None)
Quarter: 2009Q4

REPORT INFORMATION
  Report Type: 
  Country: None (occurrence: None)
  Receive Date: 20091127
  Receipt Date: 20091117
  Transmission Date: 20100525
  Serious: Yes (Hospitalization)
  Sender: FDA-Public Use
  Company Number: FR-ROCHE-670082

PATIENT
  Sex: Female

DRUGS (2)
  1. ROACCUTANE [Suspect]
     Indication: ACNE
     Route: 048
  2. HAVRIX [Suspect]
     Dosage: 1 INTAKE
     Route: 030
     Dates: start: 20090908, end: 20090908

REACTIONS (2)
  - ARTHRALGIA [None]
  - JOINT EFFUSION [None]
